FAERS Safety Report 7215140-1 (Version None)
Quarter: 2011Q1

REPORT INFORMATION
  Report Type: 
  Country: None (occurrence: None)
  Receive Date: 20110107
  Receipt Date: 20100909
  Transmission Date: 20110831
  Serious: No
  Sender: FDA-Public Use
  Company Number: A0880507A

PATIENT
  Age: 59 Year
  Sex: Female

DRUGS (2)
  1. LOVAZA [Suspect]
     Indication: BLOOD CHOLESTEROL INCREASED
     Dosage: 2G TWICE PER DAY
     Route: 048
     Dates: start: 20090601, end: 20100909
  2. NO CONCURRENT MEDICATION [Concomitant]

REACTIONS (6)
  - AGEUSIA [None]
  - WEIGHT DECREASED [None]
  - SENSORY DISTURBANCE [None]
  - INFLUENZA LIKE ILLNESS [None]
  - NAUSEA [None]
  - BLOOD CHOLESTEROL DECREASED [None]
